FAERS Safety Report 24624490 (Version 1)
Quarter: 2024Q4

REPORT INFORMATION
  Report Type: Spontaneous
  Country: CN (occurrence: CN)
  Receive Date: 20241115
  Receipt Date: 20241115
  Transmission Date: 20250114
  Serious: Yes (Hospitalization, Other)
  Sender: Haleon PLC
  Company Number: CN-HALEON-2208664

PATIENT
  Age: 21 Year
  Sex: Male
  Weight: 55 kg

DRUGS (2)
  1. ACETAMINOPHEN\CAFFEINE\CHLORPHENIRAMINE [Suspect]
     Active Substance: ACETAMINOPHEN\CAFFEINE\CHLORPHENIRAMINE
     Indication: Depression
     Route: 048
     Dates: start: 20241105, end: 20241105
  2. IBUPROFEN [Suspect]
     Active Substance: IBUPROFEN
     Indication: Depression
     Route: 048
     Dates: start: 20241105, end: 20241105

REACTIONS (28)
  - Overdose [Recovering/Resolving]
  - Sinus tachycardia [Recovering/Resolving]
  - Electrocardiogram T wave abnormal [Recovering/Resolving]
  - Toxicity to various agents [Recovering/Resolving]
  - Renal failure [Recovering/Resolving]
  - Gastric mucosal lesion [Recovering/Resolving]
  - Hyperuricaemia [Recovering/Resolving]
  - Troponin I increased [Recovering/Resolving]
  - Blood creatine phosphokinase MB increased [Recovering/Resolving]
  - Electrocardiogram ST segment elevation [Recovering/Resolving]
  - Electrocardiogram abnormal [Recovering/Resolving]
  - Myocardial injury [Recovering/Resolving]
  - Electrocardiogram repolarisation abnormality [Recovering/Resolving]
  - Myocardial necrosis marker increased [Recovering/Resolving]
  - Alanine aminotransferase increased [Recovering/Resolving]
  - Blood creatinine increased [Recovering/Resolving]
  - Alanine aminotransferase increased [Recovering/Resolving]
  - Product use in unapproved indication [Unknown]
  - Decreased appetite [Recovering/Resolving]
  - Vomiting [Recovering/Resolving]
  - Tachypnoea [Recovering/Resolving]
  - Chest discomfort [Recovering/Resolving]
  - Chills [Recovering/Resolving]
  - Palpitations [Recovering/Resolving]
  - Headache [Recovering/Resolving]
  - Pyrexia [Recovering/Resolving]
  - Nausea [Recovering/Resolving]
  - Heart rate abnormal [Recovering/Resolving]

NARRATIVE: CASE EVENT DATE: 20241105
